FAERS Safety Report 8218970-2 (Version None)
Quarter: 2012Q1

REPORT INFORMATION
  Report Type: 
  Country: None (occurrence: None)
  Receive Date: 20120319
  Receipt Date: 20120313
  Transmission Date: 20120608
  Serious: Yes (Hospitalization, Other)
  Sender: FDA-Public Use
  Company Number: US-MERCK-1109USA03037

PATIENT
  Age: 86 Year
  Sex: Male

DRUGS (5)
  1. FOSAMAX [Suspect]
     Indication: BONE DENSITY DECREASED
     Route: 048
     Dates: start: 20030101, end: 20090101
  2. INSULIN [Concomitant]
     Indication: DIABETES MELLITUS
     Route: 065
  3. BLOOD THINNER (UNSPECIFIED) [Concomitant]
     Route: 065
  4. FOSAMAX [Suspect]
     Indication: HORMONE THERAPY
     Route: 048
     Dates: start: 20030101, end: 20090101
  5. AMIODARONE [Concomitant]
     Route: 065

REACTIONS (5)
  - DRUG INEFFECTIVE [None]
  - FEMUR FRACTURE [None]
  - DEVICE ISSUE [None]
  - HIP FRACTURE [None]
  - FALL [None]
